FAERS Safety Report 6461818-7 (Version None)
Quarter: 2009Q4

REPORT INFORMATION
  Report Type: 
  Country: None (occurrence: None)
  Receive Date: 20091130
  Receipt Date: 20091118
  Transmission Date: 20100525
  Serious: Yes (Other)
  Sender: FDA-Public Use
  Company Number: PHHY2009JP50651

PATIENT
  Age: 8 Year
  Sex: Male
  Weight: 38 kg

DRUGS (6)
  1. CYCLOSPORINE [Suspect]
     Indication: PUSTULAR PSORIASIS
     Dosage: POSTPRANDIAL 125 MG PER DAY
  2. CYCLOSPORINE [Suspect]
     Dosage: POSTPRANDIAL 200 MG PER DAY
  3. CYCLOSPORINE [Suspect]
     Dosage: PREPRANDIAL 175 MG PER DAY
  4. CYCLOSPORINE [Suspect]
     Dosage: PREPRANDIAL 100 MG PER DAY
     Dates: end: 20090401
  5. PREDNISOLONE [Concomitant]
     Indication: PUSTULAR PSORIASIS
     Dosage: 20 MG/DAY
  6. PREDNISOLONE [Concomitant]
     Dosage: 15 MG/DAY

REACTIONS (3)
  - ALPHA TUMOUR NECROSIS FACTOR INCREASED [None]
  - ERYTHEMA [None]
  - INTERLEUKIN LEVEL INCREASED [None]
